FAERS Safety Report 7884678-6 (Version None)
Quarter: 2011Q4

REPORT INFORMATION
  Report Type: 
  Country: None (occurrence: None)
  Receive Date: 20111102
  Receipt Date: 20111028
  Transmission Date: 20120403
  Serious: Yes (Other)
  Sender: FDA-Public Use
  Company Number: US-PFIZER INC-2011232655

PATIENT
  Age: 75 Year
  Sex: Female

DRUGS (1)
  1. ANTIVERT [Suspect]
     Dosage: UNK

REACTIONS (2)
  - CARDIAC OPERATION [None]
  - DRUG HYPERSENSITIVITY [None]
